FAERS Safety Report 22769437 (Version 3)
Quarter: 2023Q4

REPORT INFORMATION
  Report Type: Report from Study
  Country: ES (occurrence: ES)
  Receive Date: 20230801
  Receipt Date: 20231221
  Transmission Date: 20240109
  Serious: Yes (Hospitalization, Other)
  Sender: FDA-Public Use
  Company Number: ES-ABBVIE-5344313

PATIENT
  Age: 49 Year
  Sex: Male
  Weight: 90 kg

DRUGS (9)
  1. HUMIRA [Suspect]
     Active Substance: ADALIMUMAB
     Indication: Colitis ulcerative
     Route: 058
     Dates: start: 20171220, end: 20190308
  2. PREDNISONE [Concomitant]
     Active Substance: PREDNISONE
     Indication: Castleman^s disease
     Route: 048
     Dates: start: 20220811
  3. BECLOMETHASONE [Concomitant]
     Active Substance: BECLOMETHASONE
     Indication: Colitis ulcerative
     Route: 048
     Dates: start: 20180202
  4. MESALAMINE [Concomitant]
     Active Substance: MESALAMINE
     Indication: Colitis ulcerative
     Route: 048
     Dates: start: 19991115
  5. CETIRIZINE [Concomitant]
     Active Substance: CETIRIZINE HYDROCHLORIDE
     Indication: Hypersensitivity
     Dosage: FREQUENCY-ONLY IF YOU SUFFER ALLERGIES
     Route: 048
     Dates: start: 20170504
  6. OMEPRAZOLE [Concomitant]
     Active Substance: OMEPRAZOLE
     Indication: Prophylaxis
     Route: 048
     Dates: start: 20200604
  7. ZOLPIDEM [Concomitant]
     Active Substance: ZOLPIDEM TARTRATE
     Indication: Insomnia
     Dosage: TIME INTERVAL: AS NECESSARY
     Route: 048
     Dates: start: 20211229
  8. ACETAMINOPHEN [Concomitant]
     Active Substance: ACETAMINOPHEN
     Indication: Myalgia
     Dosage: TIME INTERVAL: AS NECESSARY
     Route: 048
     Dates: start: 20210301
  9. ACTEMRA [Concomitant]
     Active Substance: TOCILIZUMAB
     Indication: Castleman^s disease
     Route: 041
     Dates: start: 20200504

REACTIONS (3)
  - Scrotal inflammation [Recovered/Resolved]
  - Hydrocele [Recovered/Resolved]
  - Cellulite [Recovered/Resolved]

NARRATIVE: CASE EVENT DATE: 20230219
